FAERS Safety Report 6324831-6 (Version None)
Quarter: 2009Q3

REPORT INFORMATION
  Report Type: 
  Country: None (occurrence: None)
  Receive Date: 20090824
  Receipt Date: 20090623
  Transmission Date: 20100115
  Serious: No
  Sender: FDA-Public Use
  Company Number: US-ABBOTT-09P-163-0581738-00

PATIENT
  Sex: Male
  Weight: 111.68 kg

DRUGS (5)
  1. NIASPAN [Suspect]
     Indication: BLOOD CHOLESTEROL ABNORMAL
     Dates: start: 20090615
  2. SIMVASTATIN [Concomitant]
     Indication: DRUG USE FOR UNKNOWN INDICATION
     Route: 048
  3. LEVOTHYROXINE SODIUM [Concomitant]
     Indication: DRUG USE FOR UNKNOWN INDICATION
     Route: 048
  4. TRICOR [Concomitant]
     Indication: DRUG USE FOR UNKNOWN INDICATION
     Dosage: VERIFIED DOSE WITH PATIENT
     Route: 048
  5. AMLODIPINE BESYLATE AND BENAZEPRIL HCL [Concomitant]
     Indication: DRUG USE FOR UNKNOWN INDICATION
     Route: 048

REACTIONS (5)
  - FEELING ABNORMAL [None]
  - FLUSHING [None]
  - GENERALISED ERYTHEMA [None]
  - PRURITUS GENERALISED [None]
  - SKIN BURNING SENSATION [None]
